FAERS Safety Report 7035490-1 (Version None)
Quarter: 2010Q4

REPORT INFORMATION
  Report Type: 
  Country: None (occurrence: None)
  Receive Date: 20101008
  Receipt Date: 20100930
  Transmission Date: 20110411
  Serious: Yes (Congenital Anomaly, Other)
  Sender: FDA-Public Use
  Company Number: US-PFIZER INC-2008049925

PATIENT
  Sex: Male
  Weight: 4 kg

DRUGS (8)
  1. ZOLOFT [Suspect]
     Indication: DEPRESSION
     Dosage: 50 MG, 1X/DAY
     Route: 064
     Dates: start: 20040801
  2. ZOLOFT [Suspect]
     Indication: ANXIETY
  3. ALBUTEROL [Concomitant]
     Dosage: EVERY 4 TO 6 HOURS
     Route: 055
  4. FLOVENT [Concomitant]
     Dosage: UNK
     Route: 055
  5. PRENATAL VITAMINS [Concomitant]
     Dosage: UNK
  6. ACETAMINOPHEN AND HYDROCODONE BITARTRATE [Concomitant]
     Dosage: UNK
     Route: 048
  7. AMOXICILLIN [Concomitant]
     Dosage: 500 MG, 3X/DAY
     Route: 048
  8. NITROFURANTOIN [Concomitant]
     Dosage: 100 MG, 2X/DAY
     Route: 048

REACTIONS (4)
  - CONGENITAL ARTERIAL MALFORMATION [None]
  - DRUG EXPOSURE DURING PREGNANCY [None]
  - JAUNDICE NEONATAL [None]
  - PULMONARY VALVE INCOMPETENCE [None]
